FAERS Safety Report 6788496-1 (Version None)
Quarter: 2010Q2

REPORT INFORMATION
  Report Type: 
  Country: None (occurrence: None)
  Receive Date: 20100623
  Receipt Date: 20080318
  Transmission Date: 20101027
  Serious: Yes (Other)
  Sender: FDA-Public Use
  Company Number: US-PFIZER INC-2008024998

PATIENT
  Sex: Female
  Weight: 46 kg

DRUGS (2)
  1. DEPO-PROVERA SUSPENSION/INJ [Suspect]
     Indication: CONTRACEPTION
     Dosage: FIRST INJECTION
     Route: 030
     Dates: start: 19960101
  2. TRAZODONE HYDROCHLORIDE [Concomitant]

REACTIONS (2)
  - MENOPAUSE [None]
  - OSTEOPOROSIS [None]
